FAERS Safety Report 6818612-4 (Version None)
Quarter: 2010Q2

REPORT INFORMATION
  Report Type: 
  Country: None (occurrence: None)
  Receive Date: 20100630
  Receipt Date: 20100621
  Transmission Date: 20101027
  Serious: Yes (Death, Life-Threatening)
  Sender: FDA-Public Use
  Company Number: 336896

PATIENT
  Age: 72 Year
  Sex: Female
  Weight: 60 kg

DRUGS (7)
  1. ACYCLOVIR [Suspect]
     Dosage: 300 MG, INTRAVENOUS
     Route: 042
     Dates: start: 20090706
  2. (ADCAL-D3) [Concomitant]
  3. (ALENDRONIC ACID) [Concomitant]
  4. AZATHIOPRINE [Concomitant]
  5. LISINOPRIL [Concomitant]
  6. PREDNISOLONE [Concomitant]
  7. FOLIC ACID [Concomitant]

REACTIONS (3)
  - CONFUSIONAL STATE [None]
  - DYSARTHRIA [None]
  - LEUKOENCEPHALOPATHY [None]
